FAERS Safety Report 25493457 (Version 1)
Quarter: 2025Q2

REPORT INFORMATION
  Report Type: Spontaneous
  Country: JP (occurrence: JP)
  Receive Date: 20250630
  Receipt Date: 20250630
  Transmission Date: 20250717
  Serious: Yes (Hospitalization)
  Sender: STRIDES
  Company Number: JP-MLMSERVICE-20250612-PI536735-00270-1

PATIENT
  Age: 20 Year
  Sex: Female

DRUGS (1)
  1. PREDNISOLONE [Suspect]
     Active Substance: PREDNISOLONE
     Indication: Systemic lupus erythematosus
     Route: 048

REACTIONS (2)
  - Osteonecrosis [Recovering/Resolving]
  - Osteonecrosis [Recovering/Resolving]
